FAERS Safety Report 24012674 (Version 1)
Quarter: 2024Q2

REPORT INFORMATION
  Report Type: Spontaneous
  Country: US (occurrence: US)
  Receive Date: 20240626
  Receipt Date: 20240626
  Transmission Date: 20240716
  Serious: No
  Sender: FDA-Public Use
  Company Number: US-PRINSTON PHARMACEUTICAL INC.-2023PRN00273

PATIENT
  Sex: Female

DRUGS (5)
  1. DULOXETINE [Suspect]
     Active Substance: DULOXETINE
     Indication: Anxiety
     Dosage: 40 MG, 1X/DAY IN THE MORNING
     Dates: start: 202301, end: 2023
  2. DULOXETINE [Suspect]
     Active Substance: DULOXETINE
     Dosage: 60 MG, 3X/DAY IN THE MORNING
     Dates: start: 2023, end: 2023
  3. DULOXETINE [Suspect]
     Active Substance: DULOXETINE
     Dosage: 60 MG, 3X/DAY IN THE AFTERNOON
     Dates: start: 2023, end: 2023
  4. DULOXETINE [Suspect]
     Active Substance: DULOXETINE
     Dosage: 60 MG, 3X/DAY AT 5 PM
     Dates: start: 2023
  5. TRAZODONE [Concomitant]
     Active Substance: TRAZODONE HYDROCHLORIDE
     Dosage: UNK
     Dates: start: 2021

REACTIONS (3)
  - Drug ineffective [Unknown]
  - Energy increased [Unknown]
  - Somnolence [Unknown]

NARRATIVE: CASE EVENT DATE: 20230101
